FAERS Safety Report 14233075 (Version 1)
Quarter: 2017Q4

REPORT INFORMATION
  Report Type: Spontaneous
  Country: US (occurrence: US)
  Receive Date: 20171128
  Receipt Date: 20171128
  Transmission Date: 20180321
  Serious: No
  Sender: FDA-Public Use
  Company Number: US-LEADIANT BIOSCIENCES INC-2016STPI001023

PATIENT
  Age: 53 Year
  Sex: Male

DRUGS (3)
  1. AMLODIPINE [Concomitant]
     Active Substance: AMLODIPINE BESYLATE
  2. MATULANE [Suspect]
     Active Substance: PROCARBAZINE HYDROCHLORIDE
     Indication: BRAIN NEOPLASM
     Dosage: 150 MG
     Dates: start: 20160721
  3. KEPPRA [Concomitant]
     Active Substance: LEVETIRACETAM

REACTIONS (1)
  - Nausea [Not Recovered/Not Resolved]

NARRATIVE: CASE EVENT DATE: 201612
